FAERS Safety Report 14371907 (Version 11)
Quarter: 2020Q1

REPORT INFORMATION
  Report Type: Report from Study
  Country: FR (occurrence: FR)
  Receive Date: 20180110
  Receipt Date: 20200221
  Transmission Date: 20200409
  Serious: Yes (Death, Hospitalization, Other)
  Sender: FDA-Public Use
  Company Number: FR-MYLANLABS-2018M1001806

PATIENT
  Age: 41 Year
  Sex: Male
  Weight: 55 kg

DRUGS (36)
  1. OXALIPLATIN. [Suspect]
     Active Substance: OXALIPLATIN
     Dosage: 75 MG/M2, Q2W
  2. METEOXANE                          /08328901/ [Concomitant]
     Active Substance: DIMETHICONE\PHLOROGLUCINOL
     Indication: ABDOMINAL DISTENSION
     Dosage: UNK
     Route: 048
     Dates: start: 20160729, end: 2016
  3. DUROGESIC [Concomitant]
     Active Substance: FENTANYL
     Indication: ABDOMINAL PAIN
     Dosage: UNK
     Route: 003
     Dates: start: 20160922, end: 20161004
  4. DEBRIDAT                           /00465201/ [Concomitant]
     Active Substance: TRIMEBUTINE MALEATE
     Dosage: UNK
  5. FLUOROURACIL. [Suspect]
     Active Substance: FLUOROURACIL
     Dosage: 1400 MILLIGRAM/SQ. METER, TOTAL
     Route: 065
     Dates: start: 20160914
  6. GEMCITABINE. [Suspect]
     Active Substance: GEMCITABINE
     Dosage: 500 MG/M2, Q2W
  7. IRINOTECAN [Suspect]
     Active Substance: IRINOTECAN
     Indication: PANCREATIC NEUROENDOCRINE TUMOUR
     Dosage: 180 MG/M2, TOTAL
     Dates: start: 20160914
  8. SOLUPRED                           /00016201/ [Concomitant]
     Active Substance: PREDNISOLONE
     Indication: ABDOMINAL PAIN
     Dosage: UNK
     Route: 048
     Dates: start: 20160920, end: 20160923
  9. INNOHEP [Concomitant]
     Active Substance: TINZAPARIN SODIUM
     Indication: PROPHYLAXIS
     Dosage: UNK
     Route: 058
     Dates: start: 20160915
  10. DUROGESIC [Concomitant]
     Active Substance: FENTANYL
     Dosage: UNK
     Route: 003
     Dates: start: 201510
  11. INNOHEP [Concomitant]
     Active Substance: TINZAPARIN SODIUM
     Indication: PROPHYLAXIS
     Dosage: UNK
     Route: 048
  12. SOLU-MEDROL [Concomitant]
     Active Substance: METHYLPREDNISOLONE SODIUM SUCCINATE
     Indication: ABDOMINAL PAIN
     Dosage: UNK
     Route: 048
     Dates: start: 20160920, end: 20160920
  13. SOLU-MEDROL [Concomitant]
     Active Substance: METHYLPREDNISOLONE SODIUM SUCCINATE
     Dosage: UNK
     Route: 048
     Dates: start: 20161004, end: 20161005
  14. OXALIPLATIN. [Suspect]
     Active Substance: OXALIPLATIN
     Indication: PANCREATIC NEUROENDOCRINE TUMOUR
     Dosage: 75 MG/M2, CYCLE, EVERY14 DAYS
     Dates: start: 20151105
  15. OXALIPLATIN. [Suspect]
     Active Substance: OXALIPLATIN
     Dosage: 75 MG/M2, CYCLIC,EVERY14 DAYS
     Dates: start: 20160616
  16. SUTENT [Suspect]
     Active Substance: SUNITINIB MALATE
     Indication: PANCREATIC NEUROENDOCRINE TUMOUR
     Dosage: 25 MG, ONCE DAILY CONTINUOUS
     Dates: start: 20150919, end: 20151023
  17. SUTENT [Suspect]
     Active Substance: SUNITINIB MALATE
     Dosage: 37.5 MG, QD
     Dates: start: 20150827, end: 20150831
  18. MORPHINE SULFATE. [Concomitant]
     Active Substance: MORPHINE SULFATE
     Indication: ABDOMINAL PAIN
     Dosage: UNK
     Route: 042
     Dates: start: 20161004, end: 20161007
  19. GEMCITABINE. [Suspect]
     Active Substance: GEMCITABINE
     Dosage: 500 MG/M2, EVERY 14 DAYS
     Dates: start: 20160616
  20. GEMCITABINE. [Suspect]
     Active Substance: GEMCITABINE
     Dosage: 840 MG/M2, CYCLIC:EVERY 14 DAYS
     Dates: start: 20160616
  21. SOMATULINE                         /01330101/ [Suspect]
     Active Substance: LANREOTIDE ACETATE
     Indication: PANCREATIC NEUROENDOCRINE TUMOUR
     Dosage: 120 MG, CYCLE,CYCLIC, EVERY 28 DAYS
     Dates: start: 20160810, end: 20160907
  22. SOMATULINE                         /01330101/ [Suspect]
     Active Substance: LANREOTIDE ACETATE
     Dosage: 120 MG, CYCLE
  23. INIPOMP [Concomitant]
     Active Substance: PANTOPRAZOLE SODIUM
     Indication: REFLUX GASTRITIS
     Dosage: UNK
     Route: 048
     Dates: start: 20160616
  24. OXYNORM [Concomitant]
     Active Substance: OXYCODONE HYDROCHLORIDE
     Indication: ABDOMINAL PAIN
     Dosage: UNK
     Route: 048
     Dates: start: 20160916, end: 20161004
  25. INNOHEP [Concomitant]
     Active Substance: TINZAPARIN SODIUM
     Indication: REFLUX GASTRITIS
  26. SUTENT [Suspect]
     Active Substance: SUNITINIB MALATE
     Dosage: 12.5 MG, QD
     Dates: start: 20150910, end: 20150918
  27. INNOHEP [Concomitant]
     Active Substance: TINZAPARIN SODIUM
     Indication: REFLUX GASTRITIS
  28. GEMCITABINE. [Suspect]
     Active Substance: GEMCITABINE
     Indication: PANCREATIC NEUROENDOCRINE TUMOUR
     Dosage: 500 MG/M2, EVERY 14 DAYS
     Dates: start: 20151105, end: 20160218
  29. OXALIPLATIN. [Suspect]
     Active Substance: OXALIPLATIN
     Dosage: 126 MILLIGRAM/SQ. METER
     Dates: start: 20160616
  30. ELVORINE [Suspect]
     Active Substance: LEUCOVORIN CALCIUM
     Indication: PANCREATIC NEUROENDOCRINE TUMOUR
     Dosage: 200 MG/M2, UNK
     Dates: start: 20160914
  31. OXYNORM [Concomitant]
     Active Substance: OXYCODONE HYDROCHLORIDE
     Dosage: UNK
     Route: 048
     Dates: start: 201510
  32. OXYNORM [Concomitant]
     Active Substance: OXYCODONE HYDROCHLORIDE
     Dosage: UNK
  33. DEBRIDAT                           /00465201/ [Concomitant]
     Active Substance: TRIMEBUTINE MALEATE
     Indication: ABDOMINAL DISTENSION
     Dosage: UNK
     Route: 048
     Dates: start: 20160902, end: 2016
  34. TARDYFERON [Concomitant]
     Active Substance: FERROUS SULFATE
     Indication: IRON DEFICIENCY
     Dosage: UNK
     Dates: start: 20160630
  35. FLUOROURACIL. [Suspect]
     Active Substance: FLUOROURACIL
     Indication: PANCREATIC NEUROENDOCRINE TUMOUR
     Dosage: 2400 MG/M2, TOTAL
     Route: 065
     Dates: start: 20160914
  36. FLUOROURACIL. [Suspect]
     Active Substance: FLUOROURACIL
     Dosage: 400 MG/M2, TOTAL
     Route: 065
     Dates: start: 20160914

REACTIONS (14)
  - Dyspnoea [Not Recovered/Not Resolved]
  - Dysaesthesia [Recovered/Resolved]
  - Abdominal pain [Not Recovered/Not Resolved]
  - Neutropenia [Unknown]
  - Decreased appetite [Not Recovered/Not Resolved]
  - Asthenia [Not Recovered/Not Resolved]
  - Psychomotor skills impaired [Recovered/Resolved]
  - Hepatic pain [Recovered/Resolved]
  - Psychomotor retardation [Recovered/Resolved]
  - Hypoaesthesia [Not Recovered/Not Resolved]
  - Tumour necrosis [Recovered/Resolved]
  - Pain [Recovered/Resolved]
  - General physical health deterioration [Recovered/Resolved]
  - Neoplasm progression [Fatal]

NARRATIVE: CASE EVENT DATE: 20150829
